FAERS Safety Report 12959195 (Version 7)
Quarter: 2018Q4

REPORT INFORMATION
  Report Type: Spontaneous
  Country: RO (occurrence: RO)
  Receive Date: 20161121
  Receipt Date: 20181102
  Transmission Date: 20190204
  Serious: Yes (Hospitalization)
  Sender: FDA-Public Use
  Company Number: RO-AUROBINDO-AUR-APL-2016-14046

PATIENT
  Age: 71 Year
  Sex: Male

DRUGS (14)
  1. NEBIVOLOL. [Concomitant]
     Active Substance: NEBIVOLOL
     Indication: PRODUCT USED FOR UNKNOWN INDICATION
     Dosage: 0.5 DF, DAILY, 1/2 TABLET DAILY
     Route: 065
  2. FUROSEMIDE W/SPIRONOLACTONE [Concomitant]
     Active Substance: FUROSEMIDE\SPIRONOLACTONE
     Indication: PRODUCT USED FOR UNKNOWN INDICATION
     Dosage: 20 MG + 50 MG DAILY
     Route: 065
  3. METFORMIN [Suspect]
     Active Substance: METFORMIN HYDROCHLORIDE
     Indication: TYPE 2 DIABETES MELLITUS
     Dosage: 1000 MG, 3 TIMES A DAY
     Route: 048
     Dates: start: 19980724
  4. CLOPIDOGREL [Concomitant]
     Active Substance: CLOPIDOGREL BISULFATE
     Indication: PRODUCT USED FOR UNKNOWN INDICATION
     Dosage: 75 MG, DAILY (QD)
     Route: 048
  5. VINPOCETINE [Concomitant]
     Active Substance: VINPOCETINE
     Indication: PRODUCT USED FOR UNKNOWN INDICATION
     Dosage: 10 MG, TWO TIMES A DAY
     Route: 065
  6. GLIBENCLAMIDE [Concomitant]
     Active Substance: GLYBURIDE
     Indication: TYPE 2 DIABETES MELLITUS
     Dosage: UNK
     Route: 065
     Dates: start: 20040114, end: 20061010
  7. ACTRAPID [Concomitant]
     Active Substance: INSULIN HUMAN
     Indication: TYPE 2 DIABETES MELLITUS
     Dosage: UNK
     Route: 065
     Dates: start: 20090706, end: 20120401
  8. RILMENIDINE [Concomitant]
     Active Substance: RILMENIDINE
     Indication: PRODUCT USED FOR UNKNOWN INDICATION
     Dosage: 1 MG, DAILY (QD)
     Route: 065
  9. FUROSEMIDE W/SPIRONOLACTONE [Concomitant]
     Active Substance: FUROSEMIDE\SPIRONOLACTONE
     Dosage: SPIRONOLACTONE 50 MG AND FUROSEMIDE 20 MG PER DAY ()
     Route: 065
  10. NIFEDIPINE. [Concomitant]
     Active Substance: NIFEDIPINE
     Indication: PRODUCT USED FOR UNKNOWN INDICATION
     Dosage: 30 MG, DAILY (QD)
     Route: 048
  11. DIOSMIN [Concomitant]
     Active Substance: DIOSMIN
     Indication: PRODUCT USED FOR UNKNOWN INDICATION
     Dosage: 500 MG, TWO TIMES A DAY
     Route: 065
  12. DESLORATADINE. [Concomitant]
     Active Substance: DESLORATADINE
     Indication: PRODUCT USED FOR UNKNOWN INDICATION
     Dosage: 5 MG, DAILY (QD)
     Route: 048
  13. MIXTARD                            /00806401/ [Concomitant]
     Active Substance: INSULIN HUMAN
     Indication: TYPE 2 DIABETES MELLITUS
     Dosage: UNK
     Route: 065
     Dates: start: 20141227
  14. DIOSMIN [Concomitant]
     Active Substance: DIOSMIN
     Dosage: 5 MILLIGRAM, DAILY (QD)
     Route: 065

REACTIONS (3)
  - Haemoglobin decreased [Unknown]
  - Vitamin B12 decreased [Recovered/Resolved]
  - Haematocrit decreased [Recovered/Resolved]

NARRATIVE: CASE EVENT DATE: 201505
